FAERS Safety Report 18004911 (Version 1)
Quarter: 2020Q3

REPORT INFORMATION
  Report Type: Spontaneous
  Country: US (occurrence: US)
  Receive Date: 20200710
  Receipt Date: 20200710
  Transmission Date: 20201103
  Serious: Yes (Hospitalization, Other)
  Sender: FDA-Public Use
  Company Number: US-LUPIN PHARMACEUTICALS INC.-2020-03186

PATIENT
  Age: 55 Year
  Sex: Male

DRUGS (6)
  1. TRIAMCINOLONE [Suspect]
     Active Substance: TRIAMCINOLONE
     Indication: SYNOVIAL CYST
     Dosage: 2 DOSAGE FORM
     Route: 065
  2. ELVITEGRAVIR [Concomitant]
     Active Substance: ELVITEGRAVIR
     Indication: HIV INFECTION
     Dosage: UNK
     Route: 065
  3. COBICISTAT [Suspect]
     Active Substance: COBICISTAT
     Indication: HIV INFECTION
     Dosage: UNK
     Route: 065
  4. FLUTICASONE. [Concomitant]
     Active Substance: FLUTICASONE
     Indication: NASAL CONGESTION
     Dosage: UNK
     Route: 045
  5. TENOFOVIR ALAFENAMIDE [Concomitant]
     Active Substance: TENOFOVIR ALAFENAMIDE
     Indication: HIV INFECTION
     Dosage: UNK
     Route: 065
  6. EMTRICITABINE [Concomitant]
     Active Substance: EMTRICITABINE
     Indication: HIV INFECTION
     Dosage: UNK
     Route: 065

REACTIONS (6)
  - Pulmonary embolism [Unknown]
  - Cushing^s syndrome [Recovered/Resolved]
  - Cushingoid [Recovered/Resolved]
  - Weight increased [Unknown]
  - Drug interaction [Unknown]
  - Deep vein thrombosis [Unknown]
